FAERS Safety Report 5807571-9 (Version None)
Quarter: 2008Q3

REPORT INFORMATION
  Report Type: 
  Country: None (occurrence: None)
  Receive Date: 20080711
  Receipt Date: 20080704
  Transmission Date: 20090109
  Serious: Yes (Hospitalization)
  Sender: FDA-Public Use
  Company Number: FR-WYE-G01817808

PATIENT
  Sex: Male

DRUGS (8)
  1. GEMTUZUMAB OZOGAMICIN [Suspect]
     Indication: ACUTE MYELOID LEUKAEMIA
     Dosage: 5 MG EVERY 1 CYC
     Route: 042
     Dates: start: 20080307, end: 20080307
  2. EFFEXOR [Suspect]
     Dosage: 100 MG TOTAL DAILY
     Route: 048
     Dates: start: 20080405, end: 20080408
  3. ARACYTINE [Suspect]
     Dosage: 3600 MG
     Route: 042
     Dates: start: 20080307, end: 20080310
  4. BACTRIM [Suspect]
     Dosage: 4 AMPULES 3 TIMES PER DAY
     Route: 042
     Dates: start: 20080328, end: 20080408
  5. TIENAM [Suspect]
     Dosage: 1500 MG TOTAL DAILY
     Route: 042
     Dates: start: 20080403, end: 20080409
  6. DAUNORUBICIN HCL [Suspect]
     Dosage: 100 MG EVERY 1 CYC
     Route: 042
     Dates: start: 20080307, end: 20080307
  7. PANTOPRAZOLE SODIUM [Suspect]
     Route: 048
     Dates: start: 20080331, end: 20080408
  8. TAHOR [Suspect]
     Route: 048
     Dates: start: 20080331, end: 20080408

REACTIONS (7)
  - ALANINE AMINOTRANSFERASE INCREASED [None]
  - ASPARTATE AMINOTRANSFERASE INCREASED [None]
  - BLOOD ALKALINE PHOSPHATASE INCREASED [None]
  - BLOOD BILIRUBIN INCREASED [None]
  - CHOLELITHIASIS [None]
  - GAMMA-GLUTAMYLTRANSFERASE INCREASED [None]
  - JAUNDICE [None]
